FAERS Safety Report 24177343 (Version 2)
Quarter: 2024Q3

REPORT INFORMATION
  Report Type: Spontaneous
  Country: US (occurrence: US)
  Receive Date: 20240806
  Receipt Date: 20240911
  Transmission Date: 20241017
  Serious: No
  Sender: ROCHE
  Company Number: US-ROCHE-10000041450

PATIENT
  Age: 42 Year
  Sex: Female
  Weight: 68.04 kg

DRUGS (4)
  1. XOLAIR PFS [Suspect]
     Active Substance: OMALIZUMAB
     Indication: Urticaria
     Dosage: INJECT 1 UNDER THE SKIN EVERY 4 WEEKS
     Route: 058
     Dates: start: 202406
  2. XOLAIR [Suspect]
     Active Substance: OMALIZUMAB
     Indication: Product used for unknown indication
     Route: 058
     Dates: start: 202311
  3. XOLAIR [Suspect]
     Active Substance: OMALIZUMAB
  4. ASPIRIN [Concomitant]
     Active Substance: ASPIRIN

REACTIONS (4)
  - Product dose omission issue [Unknown]
  - Thrombosis [Recovered/Resolved]
  - Product container seal issue [Unknown]
  - Nasopharyngitis [Recovering/Resolving]

NARRATIVE: CASE EVENT DATE: 20240614
